FAERS Safety Report 10680099 (Version 2)
Quarter: 2015Q1

REPORT INFORMATION
  Report Type: Spontaneous
  Country: US (occurrence: US)
  Receive Date: 20141229
  Receipt Date: 20150108
  Transmission Date: 20150720
  Serious: Yes (Other)
  Sender: FDA-Public Use
  Company Number: US-PFIZER INC-2014357412

PATIENT
  Age: 71 Year
  Sex: Female
  Weight: 77.1 kg

DRUGS (1)
  1. DICLOFENAC EPOLAMINE [Suspect]
     Active Substance: DICLOFENAC EPOLAMINE
     Dosage: 100 MG, 2X/DAY (EVERY 12 HOURS)

REACTIONS (1)
  - Back disorder [Unknown]

NARRATIVE: CASE EVENT DATE: 2012
